FAERS Safety Report 5882675-3 (Version None)
Quarter: 2008Q3

REPORT INFORMATION
  Report Type: 
  Country: None (occurrence: None)
  Receive Date: 20080913
  Receipt Date: 20080811
  Transmission Date: 20090109
  Serious: No
  Sender: FDA-Public Use
  Company Number: US-ABBOTT-08P-163-0470346-00

PATIENT
  Sex: Male
  Weight: 113.5 kg

DRUGS (8)
  1. HUMIRA [Suspect]
     Indication: CROHN'S DISEASE
     Route: 058
     Dates: start: 20080325, end: 20080325
  2. GABAPENTIN [Concomitant]
     Indication: PAIN
     Route: 048
     Dates: start: 20080601
  3. MESALAMINE [Concomitant]
     Indication: CROHN'S DISEASE
     Route: 048
  4. TANDEM [Concomitant]
     Indication: CROHN'S DISEASE
     Dosage: OCCASIONALLY 2 PILLS DAILY
     Route: 048
     Dates: start: 20070101
  5. ACETYLSALICYLIC ACID SRT [Concomitant]
     Indication: CARDIOVASCULAR EVENT PROPHYLAXIS
     Route: 048
     Dates: start: 20030101
  6. LITHIUM CARBONATE [Concomitant]
     Indication: BIPOLAR DISORDER
     Route: 048
     Dates: start: 20080301
  7. VALPROATE SODIUM [Concomitant]
     Indication: BIPOLAR DISORDER
     Route: 048
     Dates: start: 20080301
  8. RISPERIDONE [Concomitant]
     Indication: BIPOLAR DISORDER
     Route: 048
     Dates: start: 20080301

REACTIONS (2)
  - CROHN'S DISEASE [None]
  - HERPES ZOSTER [None]
